FAERS Safety Report 7861616-3 (Version None)
Quarter: 2011Q4

REPORT INFORMATION
  Report Type: 
  Country: None (occurrence: None)
  Receive Date: 20111027
  Receipt Date: 20111025
  Transmission Date: 20120403
  Serious: Yes (Other)
  Sender: FDA-Public Use
  Company Number: CA-PFIZER INC-2011228679

PATIENT
  Age: 54 Year
  Sex: Female
  Weight: 72.562 kg

DRUGS (3)
  1. ASAPHEN [Concomitant]
     Indication: ANTIPLATELET THERAPY
     Dosage: 80 MG, 1X/DAY
     Route: 048
     Dates: start: 20050101
  2. CRESTOR [Concomitant]
     Indication: BLOOD CHOLESTEROL ABNORMAL
     Dosage: 10 MG, 1X/DAY
     Route: 048
     Dates: start: 20050101
  3. VARENICLINE TARTRATE [Suspect]
     Indication: SMOKING CESSATION THERAPY
     Dosage: 1 MG, 2X/DAY
     Route: 048
     Dates: start: 20110414, end: 20110618

REACTIONS (5)
  - CANDIDIASIS [None]
  - MOUTH ULCERATION [None]
  - ORAL PAIN [None]
  - GLOSSODYNIA [None]
  - GINGIVAL PAIN [None]
